FAERS Safety Report 15391771 (Version 1)
Quarter: 2018Q3

REPORT INFORMATION
  Report Type: Spontaneous
  Country: BR (occurrence: BR)
  Receive Date: 20180917
  Receipt Date: 20180917
  Transmission Date: 20181010
  Serious: Yes (Death, Hospitalization)
  Sender: FDA-Public Use
  Company Number: BR-CELGENEUS-BRA-20180904651

PATIENT
  Age: 68 Year
  Sex: Male

DRUGS (1)
  1. VIDAZA [Suspect]
     Active Substance: AZACITIDINE
     Indication: MYELODYSPLASTIC SYNDROME
     Route: 065
     Dates: start: 20180616, end: 201807

REACTIONS (3)
  - Pyrexia [Unknown]
  - Pulmonary mycosis [Unknown]
  - Septic shock [Fatal]

NARRATIVE: CASE EVENT DATE: 20180810
